FAERS Safety Report 16639089 (Version 1)
Quarter: 2019Q3

REPORT INFORMATION
  Report Type: Spontaneous
  Country: FR (occurrence: FR)
  Receive Date: 20190726
  Receipt Date: 20190726
  Transmission Date: 20191004
  Serious: Yes (Other)
  Sender: FDA-Public Use
  Company Number: FR-009507513-1907FRA011762

PATIENT
  Age: 64 Year
  Sex: Male

DRUGS (1)
  1. IMIPENEM AND CILASTATIN [Suspect]
     Active Substance: CILASTATIN SODIUM\IMIPENEM
     Dosage: UNK
     Dates: start: 2019, end: 20190717

REACTIONS (3)
  - Bradycardia [Unknown]
  - Hepatitis fulminant [Unknown]
  - Hypotension [Unknown]

NARRATIVE: CASE EVENT DATE: 201907
